FAERS Safety Report 9026171 (Version 3)
Quarter: 2013Q1

REPORT INFORMATION
  Report Type: Spontaneous
  Country: US (occurrence: None)
  Receive Date: 20130107
  Receipt Date: 20130315
  Transmission Date: 20140127
  Serious: Yes (Other)
  Sender: FDA-Public Use
  Company Number: 2012P1066185

PATIENT
  Age: 52 Year
  Sex: Female
  Weight: 58.06 kg

DRUGS (5)
  1. PEPCID [Suspect]
     Indication: IRRITABLE BOWEL SYNDROME
     Route: 048
     Dates: start: 201201
  2. PEPCID [Suspect]
     Indication: GASTROOESOPHAGEAL REFLUX DISEASE
     Route: 048
     Dates: start: 201201
  3. TUMS [Suspect]
  4. BROMO-SELTZER [Suspect]
  5. SYNTHROID [Concomitant]

REACTIONS (5)
  - Drug ineffective [None]
  - Vomiting [None]
  - Dyspnoea [None]
  - Gastrointestinal disorder [None]
  - Hypersensitivity [None]
